FAERS Safety Report 7040181-7 (Version None)
Quarter: 2010Q4

REPORT INFORMATION
  Report Type: 
  Country: None (occurrence: None)
  Receive Date: 20101006
  Receipt Date: 20100920
  Transmission Date: 20110411
  Serious: Yes (Other)
  Sender: FDA-Public Use
  Company Number: ACO_02299_2010

PATIENT
  Sex: Male

DRUGS (12)
  1. AMPYRA [Suspect]
     Indication: GAIT DISTURBANCE
     Dosage: (10 MG BID ORAL)
     Route: 048
     Dates: start: 20100420, end: 20100615
  2. ARICEPT [Concomitant]
  3. BACLOFEN [Concomitant]
  4. FLOMAX /01280302/ [Concomitant]
  5. REBIF [Concomitant]
  6. IBUPROFEN [Concomitant]
  7. CENTRUM /02217401/ [Concomitant]
  8. VITAMIN B NOS [Concomitant]
  9. ASCORBIC ACID [Concomitant]
  10. VITAMIN D [Concomitant]
  11. FISH OIL [Concomitant]
  12. CALCIUM [Concomitant]

REACTIONS (7)
  - ALCOHOL USE [None]
  - ALTERED STATE OF CONSCIOUSNESS [None]
  - CONVULSION [None]
  - FATIGUE [None]
  - HYPERVENTILATION [None]
  - NAUSEA [None]
  - PAIN [None]
